FAERS Safety Report 12824408 (Version 2)
Quarter: 2016Q4

REPORT INFORMATION
  Report Type: Spontaneous
  Country: DE (occurrence: DE)
  Receive Date: 20161007
  Receipt Date: 20161021
  Transmission Date: 20170207
  Serious: Yes (Life-Threatening, Hospitalization, Other)
  Sender: FDA-Public Use
  Company Number: DE-WEST-WARD PHARMACEUTICALS CORP.-DE-H14001-16-02032

PATIENT
  Age: 59 Year
  Sex: Female

DRUGS (2)
  1. CITALOPRAM [Interacting]
     Active Substance: CITALOPRAM HYDROBROMIDE
     Indication: PRODUCT USED FOR UNKNOWN INDICATION
     Route: 065
  2. CLARITHROMYCIN. [Suspect]
     Active Substance: CLARITHROMYCIN
     Indication: PRODUCT USED FOR UNKNOWN INDICATION
     Route: 065

REACTIONS (3)
  - Drug interaction [Recovered/Resolved]
  - Ventricular tachycardia [Unknown]
  - Long QT syndrome [Recovering/Resolving]
